FAERS Safety Report 9517976 (Version 1)
Quarter: 2013Q3

REPORT INFORMATION
  Report Type: Spontaneous
  Country: US (occurrence: US)
  Receive Date: 20130912
  Receipt Date: 20130912
  Transmission Date: 20140515
  Serious: No
  Sender: FDA-Public Use
  Company Number: US-PFIZER INC-2013261914

PATIENT
  Age: 33 Year
  Sex: Female
  Weight: 98.4 kg

DRUGS (1)
  1. LYRICA [Suspect]
     Indication: FIBROMYALGIA
     Dosage: 75 MG, 2X/DAY
     Route: 048
     Dates: start: 201306

REACTIONS (4)
  - Liver function test abnormal [Unknown]
  - Feeling abnormal [Unknown]
  - Feeling drunk [Unknown]
  - Lethargy [Unknown]
